FAERS Safety Report 5284748-5 (Version None)
Quarter: 2007Q1

REPORT INFORMATION
  Report Type: 
  Country: None (occurrence: None)
  Receive Date: 20061226
  Receipt Date: 20061115
  Transmission Date: 20070707
  Serious: No
  Sender: FDA-Public Use
  Company Number: 2006PV014243

PATIENT
  Age: 65 Year
  Sex: Male
  Weight: 113.3993 kg

DRUGS (3)
  1. SYMLIN [Suspect]
     Indication: DIABETES MELLITUS INSULIN-DEPENDENT
     Dosage: 120 MCG;TID;SC
     Route: 058
     Dates: start: 20050101
  2. NOVOLOG [Concomitant]
  3. LANTUS [Concomitant]

REACTIONS (3)
  - BLOOD PROLACTIN INCREASED [None]
  - DRUG INEFFECTIVE FOR UNAPPROVED INDICATION [None]
  - FATIGUE [None]
